FAERS Safety Report 21018759 (Version 1)
Quarter: 2022Q2

REPORT INFORMATION
  Report Type: Spontaneous
  Country: None (occurrence: US)
  Receive Date: 20220628
  Receipt Date: 20220628
  Transmission Date: 20220721
  Serious: No
  Sender: FDA-Public Use
  Company Number: US-QOL Medical, LLC-2130364

PATIENT
  Age: 73 Year
  Sex: Female
  Weight: 59.091 kg

DRUGS (3)
  1. SUCRAID [Suspect]
     Active Substance: SACROSIDASE
     Indication: Sucrase-isomaltase deficiency
     Route: 048
     Dates: start: 202107, end: 202107
  2. UNSPECIFIED INGREDIENT [Concomitant]
     Active Substance: UNSPECIFIED INGREDIENT
  3. UNSPECIFIED INGREDIENT [Concomitant]
     Active Substance: UNSPECIFIED INGREDIENT

REACTIONS (5)
  - Headache [Recovered/Resolved]
  - Abdominal pain [Recovered/Resolved]
  - Back pain [Recovered/Resolved]
  - Flatulence [Recovered/Resolved]
  - Abdominal distension [Recovered/Resolved]

NARRATIVE: CASE EVENT DATE: 20210701
